FAERS Safety Report 5718190-7 (Version None)
Quarter: 2008Q2

REPORT INFORMATION
  Report Type: 
  Country: None (occurrence: None)
  Receive Date: 20080425
  Receipt Date: 20080415
  Transmission Date: 20081010
  Serious: Yes (Death)
  Sender: FDA-Public Use
  Company Number: FR-ROCHE-558968

PATIENT
  Sex: Male

DRUGS (10)
  1. ROCEPHIN [Suspect]
     Indication: INFECTION
     Dosage: FORM: INJECTABLE SOLUTION.
     Route: 042
     Dates: start: 20080304, end: 20080305
  2. CORTANCYL [Suspect]
     Indication: NEPHROTIC SYNDROME
     Route: 048
     Dates: end: 20080315
  3. IMUREL [Suspect]
     Indication: NEPHROTIC SYNDROME
     Route: 048
     Dates: start: 20080228, end: 20080314
  4. TAVANIC [Suspect]
     Indication: INFECTION
     Dosage: FORM: INJECTABLE SOLUTION
     Route: 042
     Dates: start: 20080305, end: 20080310
  5. AUGMENTIN '125' [Suspect]
     Indication: INFECTION
     Dosage: DOSE FORM: INJECTABLE SOLUTION
     Route: 042
     Dates: start: 20080305, end: 20080310
  6. AUGMENTIN '125' [Suspect]
     Dosage: DOSE FORM: INJECTABLE SOLUTION
     Route: 042
     Dates: start: 20080305, end: 20080310
  7. OFLOCET [Suspect]
     Indication: INFECTION
     Dosage: FORM: INJECTABLE SOLUTION
     Route: 042
     Dates: start: 20080304, end: 20080305
  8. TIENAM [Concomitant]
     Dates: start: 20080310
  9. TIENAM [Concomitant]
     Dates: start: 20080310
  10. GENTAMICIN [Concomitant]
     Dates: start: 20080310

REACTIONS (5)
  - ANAEMIA [None]
  - CARDIAC DISORDER [None]
  - NEUTROPENIA [None]
  - SEPTIC SHOCK [None]
  - THROMBOCYTOPENIA [None]
